FAERS Safety Report 6027848-4 (Version None)
Quarter: 2009Q1

REPORT INFORMATION
  Report Type: 
  Country: None (occurrence: None)
  Receive Date: 20090105
  Receipt Date: 20090102
  Transmission Date: 20090719
  Serious: Yes (Life-Threatening, Other)
  Sender: FDA-Public Use
  Company Number: ES-ROXANE LABORATORIES, INC.-2008-RO-00468RO

PATIENT
  Age: 81 Year
  Sex: Female

DRUGS (6)
  1. LORAZEPAM [Suspect]
     Indication: DEPRESSION
     Dosage: 1MG
  2. METFORMIN HCL [Suspect]
     Indication: TYPE 2 DIABETES MELLITUS
     Dosage: 1275MG
  3. AMIODARONE HCL [Suspect]
     Indication: ATRIAL FIBRILLATION
     Dosage: 200MG
  4. LEVOTHYROXINE [Suspect]
     Indication: PRIMARY HYPOTHYROIDISM
     Dosage: 50MCG
  5. ENALAPRIL MALEATE [Suspect]
     Indication: HYPERTENSION
     Dosage: 10MG
  6. ESCITALOPRAM [Suspect]
     Indication: ANHEDONIA
     Dosage: 10MG

REACTIONS (9)
  - APATHY [None]
  - ASTHENIA [None]
  - DRY SKIN [None]
  - GENERAL PHYSICAL HEALTH DETERIORATION [None]
  - HYPONATRAEMIA [None]
  - INAPPROPRIATE ANTIDIURETIC HORMONE SECRETION [None]
  - MOTOR DYSFUNCTION [None]
  - MUCOSAL DRYNESS [None]
  - PALLOR [None]
